FAERS Safety Report 13383802 (Version 1)
Quarter: 2017Q1

REPORT INFORMATION
  Report Type: Spontaneous
  Country: US (occurrence: US)
  Receive Date: 20170329
  Receipt Date: 20170329
  Transmission Date: 20170429
  Serious: Yes (Hospitalization)
  Sender: FDA-Public Use
  Company Number: US-DLSS-2017AYT000004

PATIENT
  Age: 55 Year
  Sex: Male

DRUGS (3)
  1. FORTESTA [Concomitant]
     Active Substance: TESTOSTERONE
  2. TESTOSTERON                        /00103101/ [Concomitant]
     Active Substance: TESTOSTERONE
  3. NATESTO [Suspect]
     Active Substance: TESTOSTERONE
     Indication: HYPOGONADISM
     Dosage: 5.5 MG/ACT, TID EACH NOSTRIL
     Route: 045
     Dates: start: 20161031

REACTIONS (1)
  - Deep vein thrombosis [Recovering/Resolving]

NARRATIVE: CASE EVENT DATE: 20170101
